FAERS Safety Report 13894155 (Version 4)
Quarter: 2017Q4

REPORT INFORMATION
  Report Type: Report from Study
  Country: JP (occurrence: JP)
  Receive Date: 20170822
  Receipt Date: 20171222
  Transmission Date: 20180320
  Serious: Yes (Hospitalization)
  Sender: FDA-Public Use
  Company Number: JP-GILEAD-2017-0283905

PATIENT
  Age: 75 Year
  Sex: Female
  Weight: 55.6 kg

DRUGS (11)
  1. SPIRONOLACTONE. [Concomitant]
     Active Substance: SPIRONOLACTONE
     Indication: ASCITES
     Route: 048
     Dates: start: 20150618, end: 20170908
  2. LACTULOSE. [Concomitant]
     Active Substance: LACTULOSE
     Indication: HEPATIC ENCEPHALOPATHY
     Route: 048
     Dates: start: 20160805
  3. URSODEOXYCHOLIC ACID [Concomitant]
     Active Substance: URSODIOL
     Indication: HEPATITIS C
     Dosage: UNK
     Route: 048
     Dates: start: 20150618
  4. TUMURA SHAKUYAKUKANZOTO EXTRACT [Concomitant]
     Indication: MUSCLE SPASMS
     Route: 048
     Dates: start: 20161226
  5. LIVACT                             /00847901/ [Concomitant]
     Active Substance: ISOLEUCINE\LEUCINE\VALINE
     Indication: HEPATIC ENCEPHALOPATHY
     Dosage: 4.15 G, UNK
     Route: 048
     Dates: start: 20150818
  6. DICLOFENAC SODIUM. [Concomitant]
     Active Substance: DICLOFENAC SODIUM
     Indication: FRACTURE PAIN
     Route: 061
     Dates: start: 20170714, end: 20170714
  7. RIBAVIRIN. [Suspect]
     Active Substance: RIBAVIRIN
     Dosage: 200 MG, QD
     Route: 048
     Dates: start: 20170714, end: 20170714
  8. MENATETRENONE TOWA [Concomitant]
     Indication: VITAMIN K DEFICIENCY
     Route: 048
     Dates: start: 20161226, end: 20170620
  9. RIBAVIRIN. [Suspect]
     Active Substance: RIBAVIRIN
     Indication: CHRONIC HEPATITIS C
     Dosage: 600 MG, QD
     Route: 048
     Dates: start: 20170703, end: 20170713
  10. AMINOLEBAN                         /01982601/ [Concomitant]
     Active Substance: AMINO ACIDS
     Indication: HEPATIC ENCEPHALOPATHY
     Dosage: 50 G, UNK
     Route: 048
     Dates: start: 20170130
  11. SOFOSBUVIR W/VELPATASVIR [Suspect]
     Active Substance: SOFOSBUVIR\VELPATASVIR
     Indication: CHRONIC HEPATITIS C
     Dosage: 1 DF, QD
     Route: 048
     Dates: start: 20170703, end: 20170924

REACTIONS (1)
  - Femur fracture [Recovered/Resolved]

NARRATIVE: CASE EVENT DATE: 20170714
